FAERS Safety Report 8798487 (Version 1)
Quarter: 2012Q4

REPORT INFORMATION
  Report Type: 
  Country: BR (occurrence: BR)
  Receive Date: 20120920
  Receipt Date: 20120920
  Transmission Date: 20130627
  Serious: Yes (Death)
  Sender: FDA-Public Use
  Company Number: BR-AMGEN-BRASP2012058954

PATIENT
  Sex: Female

DRUGS (1)
  1. ENBREL [Suspect]
     Indication: PSORIASIS
     Dosage: 25 mg, 2x/week
     Dates: start: 2009

REACTIONS (1)
  - Death [Fatal]
